FAERS Safety Report 6290779-9 (Version None)
Quarter: 2009Q3

REPORT INFORMATION
  Report Type: 
  Country: None (occurrence: None)
  Receive Date: 20090729
  Receipt Date: 20090729
  Transmission Date: 20100115
  Serious: Yes (Life-Threatening)
  Sender: FDA-Public Use
  Company Number: None

PATIENT
  Age: 26 Year
  Sex: Male
  Weight: 81.6475 kg

DRUGS (1)
  1. AMBIEN [Suspect]
     Dosage: 10MG BEDTIME PO, 60 PILLS
     Route: 048
     Dates: start: 20090721, end: 20090724

REACTIONS (3)
  - AGGRESSION [None]
  - FEELING ABNORMAL [None]
  - INCORRECT DOSE ADMINISTERED [None]
